FAERS Safety Report 6125735-4 (Version None)
Quarter: 2009Q1

REPORT INFORMATION
  Report Type: 
  Country: None (occurrence: None)
  Receive Date: 20090319
  Receipt Date: 20090319
  Transmission Date: 20090719
  Serious: Yes (Disabling)
  Sender: FDA-Public Use
  Company Number: None

PATIENT
  Age: 11 Year
  Sex: Male
  Weight: 52.1637 kg

DRUGS (1)
  1. SINGULAIR [Suspect]
     Indication: HOUSE DUST ALLERGY
     Dosage: 5MG QD PO
     Route: 048
     Dates: start: 20050110, end: 20090225

REACTIONS (8)
  - ANXIETY [None]
  - EDUCATIONAL PROBLEM [None]
  - INSOMNIA [None]
  - MORBID THOUGHTS [None]
  - NIGHTMARE [None]
  - PERSONALITY CHANGE [None]
  - TEARFULNESS [None]
  - THINKING ABNORMAL [None]
